FAERS Safety Report 19939938 (Version 1)
Quarter: 2021Q4

REPORT INFORMATION
  Report Type: Report from Study
  Country: US (occurrence: US)
  Receive Date: 20211011
  Receipt Date: 20211011
  Transmission Date: 20220303
  Serious: Yes (Other)
  Sender: FDA-Public Use
  Company Number: US-NOVARTISPH-NVSC2021US227651

PATIENT
  Sex: Female

DRUGS (1)
  1. ENTRESTO [Suspect]
     Active Substance: SACUBITRIL\VALSARTAN
     Indication: Product used for unknown indication
     Dosage: 0.5 DF (49/51MG, ENTRESTO WAS CUT IN 1/2 AND TAKING TWICE A DAY), BID
     Route: 065

REACTIONS (4)
  - Ejection fraction decreased [Unknown]
  - Blood pressure decreased [Unknown]
  - Wrong technique in product usage process [Unknown]
  - Product dose omission issue [Recovered/Resolved]
